FAERS Safety Report 4716330-X (Version None)
Quarter: 2005Q3

REPORT INFORMATION
  Report Type: 
  Country: None (occurrence: None)
  Receive Date: 20050711
  Receipt Date: 20040719
  Transmission Date: 20060218
  Serious: Yes (Death)
  Sender: FDA-Public Use
  Company Number: 374933

PATIENT
  Age: 44 Year
  Sex: Male

DRUGS (2)
  1. CELLCEPT [Suspect]
     Dosage: 500 MG 3 PER DAY ORAL
     Route: 048
     Dates: end: 20040615
  2. UNSPECIFIED MEDICATIONS [Concomitant]

REACTIONS (2)
  - PARVOVIRUS INFECTION [None]
  - RASH [None]
